FAERS Safety Report 9457312 (Version 4)
Quarter: 2013Q4

REPORT INFORMATION
  Report Type: Report from Study
  Country: DE (occurrence: DE)
  Receive Date: 20130814
  Receipt Date: 20131018
  Transmission Date: 20140711
  Serious: Yes (Hospitalization)
  Sender: FDA-Public Use
  Company Number: PHHY2013DE086274

PATIENT
  Sex: Female

DRUGS (2)
  1. AMN107 [Suspect]
     Indication: CHRONIC MYELOID LEUKAEMIA
     Dosage: 600 MG, UNK
     Route: 048
     Dates: start: 20130704
  2. PANTOZOL [Concomitant]
     Indication: GASTRITIS PROPHYLAXIS
     Dosage: 40 MG, UNK
     Dates: start: 20130620

REACTIONS (2)
  - Arteriospasm coronary [Recovered/Resolved]
  - Chest pain [Recovered/Resolved]
